FAERS Safety Report 4316495-8 (Version None)
Quarter: 2004Q1

REPORT INFORMATION
  Report Type: 
  Country: None (occurrence: None)
  Receive Date: 20040312
  Receipt Date: 20040302
  Transmission Date: 20041129
  Serious: Yes (Other)
  Sender: FDA-Public Use
  Company Number: WAES 0403AUS00255

PATIENT
  Age: 30 Year
  Sex: Female

DRUGS (2)
  1. CLONIDINE [Concomitant]
  2. INDOCIN [Suspect]
     Indication: ANALGESIC EFFECT

REACTIONS (2)
  - HYPERTENSION [None]
  - HYPERTENSIVE CRISIS [None]
